FAERS Safety Report 9343940 (Version 1)
Quarter: 2013Q2

REPORT INFORMATION
  Report Type: Report from Study
  Country: IT (occurrence: IT)
  Receive Date: 20130612
  Receipt Date: 20130612
  Transmission Date: 20140414
  Serious: Yes (Life-Threatening, Hospitalization, Disabling, Other)
  Sender: FDA-Public Use
  Company Number: IT-AMGEN-ITACT2013041197

PATIENT
  Age: 59 Year
  Sex: Male

DRUGS (2)
  1. FILGRASTIM [Suspect]
     Indication: NON-HODGKIN^S LYMPHOMA
     Dosage: UNK UNK, ONE TIME DOSE
  2. RITUXIMAB [Concomitant]
     Indication: NON-HODGKIN^S LYMPHOMA

REACTIONS (1)
  - Pneumonitis [Recovered/Resolved]
